FAERS Safety Report 11082489 (Version 2)
Quarter: 2015Q2

REPORT INFORMATION
  Report Type: Report from Study
  Country: BE (occurrence: BE)
  Receive Date: 20150501
  Receipt Date: 20150505
  Transmission Date: 20150821
  Serious: Yes (Death)
  Sender: FDA-Public Use
  Company Number: BE-JNJFOC-20150424029

PATIENT
  Sex: Female

DRUGS (8)
  1. ASAFLOW [Concomitant]
     Active Substance: ASPIRIN
     Route: 048
  2. PRAREDUCT [Concomitant]
     Route: 048
  3. TEMESTA [Concomitant]
     Active Substance: LORAZEPAM
     Route: 048
  4. LOORTAN [Concomitant]
     Route: 048
  5. IBRUTINIB [Suspect]
     Active Substance: IBRUTINIB
     Indication: CHRONIC LYMPHOCYTIC LEUKAEMIA
     Route: 048
     Dates: start: 20140624
  6. EMCONCOR [Concomitant]
     Active Substance: BISOPROLOL FUMARATE
     Route: 048
  7. AMLOR [Concomitant]
     Active Substance: AMLODIPINE BESYLATE
     Route: 048
  8. PLAVIX [Concomitant]
     Active Substance: CLOPIDOGREL BISULFATE
     Route: 048

REACTIONS (1)
  - Death [Fatal]
